FAERS Safety Report 5174644-6 (Version None)
Quarter: 2006Q4

REPORT INFORMATION
  Report Type: 
  Country: None (occurrence: None)
  Receive Date: 20061214
  Receipt Date: 20060614
  Transmission Date: 20070319
  Serious: No
  Sender: FDA-Public Use
  Company Number: US-AMGEN-KDL183148

PATIENT
  Sex: Female

DRUGS (3)
  1. ENBREL [Suspect]
     Indication: RHEUMATOID ARTHRITIS
     Route: 058
     Dates: start: 20060524
  2. METHOTREXATE [Concomitant]
     Route: 048
     Dates: start: 19970101
  3. PLAQUENIL [Concomitant]
     Route: 048
     Dates: start: 19970101

REACTIONS (2)
  - ERYTHEMA [None]
  - SKIN ULCER [None]
